FAERS Safety Report 18408830 (Version 2)
Quarter: 2020Q4

REPORT INFORMATION
  Report Type: Spontaneous
  Country: GB (occurrence: GB)
  Receive Date: 20201020
  Receipt Date: 20201127
  Transmission Date: 20210114
  Serious: Yes (Other)
  Sender: FDA-Public Use
  Company Number: GB-BAXTER-2020BAX021163

PATIENT
  Age: 26 Year
  Sex: Male

DRUGS (11)
  1. IFOSFAMIDE INJECTION 2G [Suspect]
     Active Substance: IFOSFAMIDE
     Indication: T-CELL LYMPHOMA
     Dosage: 4 CYCLES OF (CODOX-M IVAC); CYCLICAL
     Route: 065
     Dates: end: 201109
  2. PREDNISOLONE. [Suspect]
     Active Substance: PREDNISOLONE
     Indication: T-CELL LYMPHOMA
     Dosage: 2 CYCLES OF (CHOP); CYCLICAL
     Route: 065
     Dates: start: 201102
  3. CYTARABINE. [Suspect]
     Active Substance: CYTARABINE
     Indication: T-CELL LYMPHOMA
     Dosage: 4 CYCLES OF (CODOX-M IVAC); CYCLICAL
     Route: 065
     Dates: end: 201109
  4. CYCLOPHOSPHAMIDE INJECTION 1G [Suspect]
     Active Substance: CYCLOPHOSPHAMIDE
     Indication: T-CELL LYMPHOMA
     Dosage: 4 CYCLES OF (CODOX-M IVAC); CYCLICAL
     Route: 065
     Dates: start: 201109
  5. ETOPOSIDE. [Suspect]
     Active Substance: ETOPOSIDE
     Indication: T-CELL LYMPHOMA
     Dosage: 4 CYCLES OF (CODOX-M IVAC); CYCLICAL
     Route: 065
     Dates: end: 201109
  6. DOXIL [Suspect]
     Active Substance: DOXORUBICIN HYDROCHLORIDE
     Indication: T-CELL LYMPHOMA
     Dosage: 4 CYCLES OF (CODOX-M IVAC); CYCLICAL
     Route: 065
     Dates: end: 201109
  7. VINCRISTINE [Suspect]
     Active Substance: VINCRISTINE
     Indication: T-CELL LYMPHOMA
     Dosage: 2 CYCLES OF (CHOP); CYCLICAL
     Route: 065
     Dates: start: 201102
  8. METHOTREXATE. [Suspect]
     Active Substance: METHOTREXATE
     Indication: T-CELL LYMPHOMA
     Dosage: 4 CYCLES OF (CODOX-M IVAC); CYCLICAL
     Route: 065
     Dates: end: 201109
  9. CYCLOPHOSPHAMIDE INJECTION 1G [Suspect]
     Active Substance: CYCLOPHOSPHAMIDE
     Dosage: 2 CYCLES OF (CHOP); CYCLICAL
     Route: 065
     Dates: end: 201102
  10. DOXIL [Suspect]
     Active Substance: DOXORUBICIN HYDROCHLORIDE
     Dosage: 2 CYCLES OF (CHOP); CYCLICAL
     Route: 065
     Dates: start: 201102
  11. VINCRISTINE [Suspect]
     Active Substance: VINCRISTINE
     Dosage: 4 CYCLES OF (CODOX-M IVAC); CYCLICAL
     Route: 065
     Dates: start: 201109

REACTIONS (7)
  - Depression [Unknown]
  - Arthralgia [Unknown]
  - Impaired work ability [Unknown]
  - Poor quality sleep [Unknown]
  - Osteonecrosis [Unknown]
  - Bone infarction [Unknown]
  - Osteonecrosis [Unknown]

NARRATIVE: CASE EVENT DATE: 201102
